FAERS Safety Report 6851435 (Version 4)
Quarter: 2013Q2

REPORT INFORMATION
  Report Type: Spontaneous
  Country: US (occurrence: US)
  Receive Date: 20081215
  Receipt Date: 20130415
  Transmission Date: 20140414
  Serious: No
  Sender: FDA-Public Use
  Company Number: CA-ASTRAZENECA-2008UW27074

PATIENT
  Age: 51 Year
  Sex: Female

DRUGS (7)
  1. NEXIUM [Suspect]
     Route: 048
  2. NEXIUM [Suspect]
     Route: 048
  3. TOPROL XL [Suspect]
     Route: 048
  4. TOPROL XL [Suspect]
     Dosage: TAKING 1/2 OF A TABLET
     Route: 048
  5. TOPROL XL [Suspect]
     Route: 048
  6. ZOMIG [Suspect]
     Route: 048
  7. CELEBREX [Concomitant]

REACTIONS (4)
  - Migraine [Unknown]
  - Breast calcifications [Unknown]
  - Weight decreased [Unknown]
  - Blood pressure increased [Unknown]
